FAERS Safety Report 20160901 (Version 2)
Quarter: 2021Q4

REPORT INFORMATION
  Report Type: Spontaneous
  Country: CZ (occurrence: CZ)
  Receive Date: 20211208
  Receipt Date: 20211214
  Transmission Date: 20220303
  Serious: Yes (Hospitalization, Other)
  Sender: FDA-Public Use
  Company Number: CZ-TEVA-2021-CZ-1985371

PATIENT
  Age: 6 Decade
  Sex: Male

DRUGS (1)
  1. PACLITAXEL [Suspect]
     Active Substance: PACLITAXEL
     Indication: Kaposi^s sarcoma
     Dosage: WEEKLY APPLICATION OF PACLITAXEL
     Route: 065
     Dates: start: 202101, end: 202107

REACTIONS (2)
  - Lymphoedema [Recovered/Resolved]
  - Superinfection bacterial [Recovered/Resolved]
